FAERS Safety Report 7482877-9 (Version None)
Quarter: 2011Q2

REPORT INFORMATION
  Report Type: 
  Country: None (occurrence: None)
  Receive Date: 20110516
  Receipt Date: 20110204
  Transmission Date: 20111010
  Serious: No
  Sender: FDA-Public Use
  Company Number: US-BAYER-2011-014597

PATIENT
  Age: 38 Year
  Sex: Female
  Weight: 55 kg

DRUGS (3)
  1. TOPAMAX [Concomitant]
  2. RESTASIS [Concomitant]
     Indication: DRY EYE
  3. ALEVE (CAPLET) [Suspect]
     Indication: HEADACHE
     Dosage: CONSUMER TOOK 2 AT 10 O CLOCK AND 3 ABOUT 15 MINUTES AGO. BOTTLE COUNT 50S
     Route: 048
     Dates: start: 20110204

REACTIONS (1)
  - NO ADVERSE EVENT [None]
